FAERS Safety Report 17530399 (Version 1)
Quarter: 2020Q1

REPORT INFORMATION
  Report Type: Spontaneous
  Country: US (occurrence: US)
  Receive Date: 20200311
  Receipt Date: 20200311
  Transmission Date: 20200409
  Serious: Yes (Other)
  Sender: FDA-Public Use
  Company Number: US-MYLANLABS-2020M1025918

PATIENT
  Age: 56 Year
  Sex: Female
  Weight: 69 kg

DRUGS (1)
  1. ALPRAZOLAM TABLETS, USP [Suspect]
     Active Substance: ALPRAZOLAM
     Indication: ANXIETY
     Dosage: 0.5 MILLIGRAM, BID
     Route: 048

REACTIONS (9)
  - Renal disorder [Not Recovered/Not Resolved]
  - Recalled product administered [Not Recovered/Not Resolved]
  - Kidney infection [Not Recovered/Not Resolved]
  - Urinary tract infection [Not Recovered/Not Resolved]
  - Urinary retention [Not Recovered/Not Resolved]
  - Renal pain [Not Recovered/Not Resolved]
  - Haematuria [Not Recovered/Not Resolved]
  - Micturition urgency [Not Recovered/Not Resolved]
  - Bladder spasm [Not Recovered/Not Resolved]

NARRATIVE: CASE EVENT DATE: 201907
